FAERS Safety Report 16472241 (Version 4)
Quarter: 2019Q3

REPORT INFORMATION
  Report Type: Spontaneous
  Country: JP (occurrence: JP)
  Receive Date: 20190625
  Receipt Date: 20190816
  Transmission Date: 20191004
  Serious: Yes (Hospitalization)
  Sender: FDA-Public Use
  Company Number: JP-ABBVIE-19K-087-2830649-00

PATIENT
  Age: 35 Year
  Sex: Male

DRUGS (2)
  1. MAVIRET [Suspect]
     Active Substance: GLECAPREVIR\PIBRENTASVIR
     Route: 048
     Dates: start: 2019
  2. MAVIRET [Suspect]
     Active Substance: GLECAPREVIR\PIBRENTASVIR
     Indication: CHRONIC HEPATITIS C
     Route: 048
     Dates: start: 20190501, end: 20190626

REACTIONS (7)
  - Colitis ulcerative [Unknown]
  - Dysplasia [Unknown]
  - Pyrexia [Not Recovered/Not Resolved]
  - Colitis [Unknown]
  - Rash [Recovering/Resolving]
  - Cryptitis [Unknown]
  - Abscess intestinal [Unknown]

NARRATIVE: CASE EVENT DATE: 2019
